FAERS Safety Report 5724604-9 (Version None)
Quarter: 2008Q2

REPORT INFORMATION
  Report Type: 
  Country: None (occurrence: None)
  Receive Date: 20080430
  Receipt Date: 20080430
  Transmission Date: 20081010
  Serious: No
  Sender: FDA-Public Use
  Company Number: None

PATIENT
  Age: 62 Year
  Sex: Male

DRUGS (1)
  1. BETASERON [Suspect]
     Indication: MULTIPLE SCLEROSIS
     Dosage: .25 2 QOD S.Q.
     Route: 058
     Dates: start: 20080101

REACTIONS (2)
  - PAIN IN EXTREMITY [None]
  - SUNBURN [None]
